FAERS Safety Report 21526695 (Version 2)
Quarter: 2023Q2

REPORT INFORMATION
  Report Type: Report from Study
  Country: US (occurrence: US)
  Receive Date: 20221031
  Receipt Date: 20230609
  Transmission Date: 20230722
  Serious: Yes (Hospitalization, Other)
  Sender: FDA-Public Use
  Company Number: US-ABBVIE-4180391

PATIENT
  Age: 60 Year
  Sex: Male
  Weight: 117.02 kg

DRUGS (5)
  1. HUMIRA [Suspect]
     Active Substance: ADALIMUMAB
     Indication: Product used for unknown indication
     Dosage: FORM STRENGTH: 40 MG
     Route: 058
     Dates: start: 2006, end: 20180227
  2. COUMADIN [Concomitant]
     Active Substance: WARFARIN SODIUM
     Indication: Aortic valve replacement
     Dates: start: 2002
  3. PFIZER-BIONTECH COVID-19 VACCINE [Concomitant]
     Active Substance: TOZINAMERAN
     Indication: COVID-19 immunisation
     Dosage: ONE IN ONCE?1ST DOSE
     Route: 030
     Dates: start: 20210301, end: 20210301
  4. PFIZER-BIONTECH COVID-19 VACCINE [Concomitant]
     Active Substance: TOZINAMERAN
     Indication: COVID-19 immunisation
     Dosage: ONE IN ONCE?2ND DOSE
     Route: 030
     Dates: start: 20210401, end: 20210401
  5. PFIZER-BIONTECH COVID-19 VACCINE [Concomitant]
     Active Substance: TOZINAMERAN
     Indication: COVID-19 immunisation
     Dosage: ONE IN ONCE?3RD DOSE BOOSTER DOSE
     Route: 030
     Dates: start: 20211101, end: 20211101

REACTIONS (1)
  - Splenic rupture [Recovered/Resolved]

NARRATIVE: CASE EVENT DATE: 20180301
